FAERS Safety Report 9530743 (Version 1)
Quarter: 2013Q2

REPORT INFORMATION
  Report Type: Spontaneous
  Country: US (occurrence: None)
  Receive Date: 20130418
  Receipt Date: 20130418
  Transmission Date: 20140414
  Serious: Yes (Other)
  Sender: FDA-Public Use
  Company Number: 1301USA001914

PATIENT
  Sex: 0

DRUGS (3)
  1. MONTELUKAST SODIUM [Suspect]
     Indication: ILL-DEFINED DISORDER
     Dosage: ORAL
     Route: 048
  2. ANTIMICROBIAL [Suspect]
     Dosage: ORAL
     Route: 048
  3. CETIRIZINE HYDROCHLORIDE [Concomitant]
     Dosage: ORAL
     Route: 048

REACTIONS (2)
  - Convulsion [None]
  - Potentiating drug interaction [None]
